FAERS Safety Report 18467279 (Version 1)
Quarter: 2020Q4

REPORT INFORMATION
  Report Type: Spontaneous
  Country: US (occurrence: US)
  Receive Date: 20201104
  Receipt Date: 20201104
  Transmission Date: 20210114
  Serious: Yes (Hospitalization)
  Sender: FDA-Public Use
  Company Number: None

PATIENT
  Sex: Male

DRUGS (2)
  1. ALTERA HANDSET [DEVICE] [Suspect]
     Active Substance: DEVICE
     Indication: LUNG TRANSPLANT
     Dosage: AS NEEDED WITH  CAYSTON
     Dates: start: 20200901
  2. CAYSTON [Suspect]
     Active Substance: AZTREONAM

REACTIONS (1)
  - Hospitalisation [None]
